FAERS Safety Report 15057035 (Version 1)
Quarter: 2018Q2

REPORT INFORMATION
  Report Type: Spontaneous
  Country: US (occurrence: US)
  Receive Date: 20180604
  Receipt Date: 20180604
  Transmission Date: 20180711
  Serious: No
  Sender: FDA-Public Use
  Company Number: None

PATIENT
  Sex: Female
  Weight: 78.47 kg

DRUGS (1)
  1. AZITHROMYCIN ANHYDROUS. [Suspect]
     Active Substance: AZITHROMYCIN ANHYDROUS
     Dosage: ?          QUANTITY:R I?-.?I?L;?

REACTIONS (5)
  - Anosmia [None]
  - Ageusia [None]
  - Cough [None]
  - Constipation [None]
  - Choking sensation [None]
